FAERS Safety Report 23784884 (Version 3)
Quarter: 2025Q2

REPORT INFORMATION
  Report Type: Spontaneous
  Country: US (occurrence: US)
  Receive Date: 20240425
  Receipt Date: 20250410
  Transmission Date: 20250717
  Serious: No
  Sender: PFIZER
  Company Number: US-PFIZER INC-PV202400053819

PATIENT
  Age: 66 Year

DRUGS (1)
  1. PAXLOVID [Suspect]
     Active Substance: NIRMATRELVIR\RITONAVIR
     Indication: COVID-19 treatment
     Dates: start: 202303

REACTIONS (2)
  - Dysgeusia [Unknown]
  - Therapeutic response unexpected [Unknown]

NARRATIVE: CASE EVENT DATE: 20230301
